FAERS Safety Report 4983317-1 (Version None)
Quarter: 2006Q2

REPORT INFORMATION
  Report Type: 
  Country: None (occurrence: None)
  Receive Date: 20060426
  Receipt Date: 20050913
  Transmission Date: 20061013
  Serious: Yes (Death, Hospitalization)
  Sender: FDA-Public Use
  Company Number: US-MERCK-0509USA01834

PATIENT
  Age: 77 Year
  Sex: Male

DRUGS (1)
  1. VIOXX [Suspect]
     Indication: MUSCULOSKELETAL CHEST PAIN
     Route: 048
     Dates: start: 20000101, end: 20040101

REACTIONS (3)
  - ARTERIOSCLEROSIS [None]
  - BACK DISORDER [None]
  - MYOCARDIAL INFARCTION [None]
